FAERS Safety Report 4901784-6 (Version None)
Quarter: 2006Q1

REPORT INFORMATION
  Report Type: 
  Country: None (occurrence: None)
  Receive Date: 20060203
  Receipt Date: 20060203
  Transmission Date: 20060701
  Serious: Yes (Life-Threatening)
  Sender: FDA-Public Use
  Company Number: None

PATIENT
  Age: 35 Year
  Sex: Male
  Weight: 98.4306 kg

DRUGS (1)
  1. TRICOR [Suspect]
     Indication: MIXED HYPERLIPIDAEMIA
     Dosage: 48 MG  ONE BID   PO
     Route: 048
     Dates: start: 20050727, end: 20060118

REACTIONS (7)
  - ANGER [None]
  - BLOOD IRON INCREASED [None]
  - DYSPHORIA [None]
  - GOITRE [None]
  - HYPOREFLEXIA [None]
  - MYOSITIS [None]
  - PAPILLOEDEMA [None]
